FAERS Safety Report 4299506-8 (Version None)
Quarter: 2004Q1

REPORT INFORMATION
  Report Type: 
  Country: None (occurrence: None)
  Receive Date: 20040217
  Receipt Date: 20040209
  Transmission Date: 20041129
  Serious: No
  Sender: FDA-Public Use
  Company Number: 2004195757GB

PATIENT
  Sex: Female

DRUGS (1)
  1. SULFASALAZINE [Suspect]
     Dosage: 1000 MG, BID, ORAL
     Route: 048

REACTIONS (2)
  - BREAST CANCER [None]
  - PHARMACEUTICAL PRODUCT COMPLAINT [None]
